FAERS Safety Report 4947578-7 (Version None)
Quarter: 2006Q1

REPORT INFORMATION
  Report Type: 
  Country: None (occurrence: None)
  Receive Date: 20060320
  Receipt Date: 20060308
  Transmission Date: 20060701
  Serious: Yes (Death)
  Sender: FDA-Public Use
  Company Number: CA-JNJFOC-20060102143

PATIENT
  Sex: Male

DRUGS (4)
  1. EXTRA STRENGTH TYLENOL [Suspect]
     Dates: start: 20051230, end: 20060109
  2. EXTRA STRENGTH TYLENOL [Suspect]
     Indication: PAIN
     Dates: start: 20051230, end: 20060109
  3. TYLENOL W/ CODEINE NO. 3 [Suspect]
     Indication: PAIN
     Dosage: TAKING 4 (FREQUENCY, DATES AND DURATION UNKNOWN)
     Dates: start: 20051230, end: 20060109
  4. MORPHINE [Concomitant]
     Indication: PAIN

REACTIONS (3)
  - DEATH [None]
  - DYSURIA [None]
  - INCORRECT DOSE ADMINISTERED [None]
